FAERS Safety Report 8991282 (Version 6)
Quarter: 2014Q3

REPORT INFORMATION
  Report Type: Report from Study
  Country: CA (occurrence: CA)
  Receive Date: 20121231
  Receipt Date: 20140923
  Transmission Date: 20150326
  Serious: Yes (Hospitalization, Other)
  Sender: FDA-Public Use
  Company Number: CA-ROCHE-1173021

PATIENT
  Age: 57 Year
  Sex: Female

DRUGS (8)
  1. OMALIZUMAB [Suspect]
     Active Substance: OMALIZUMAB
     Route: 058
     Dates: start: 20090225
  2. OMALIZUMAB [Suspect]
     Active Substance: OMALIZUMAB
     Indication: ASTHMA
     Route: 058
     Dates: start: 20090202
  3. INTERFERON ALFA-2A [Suspect]
     Active Substance: INTERFERON ALFA-2A
     Indication: HEPATITIS C
     Route: 065
  4. IMOVANE [Concomitant]
     Active Substance: ZOPICLONE
  5. PULMICORT TURBUHALER [Concomitant]
     Active Substance: BUDESONIDE
  6. SALINEX (SODIUM CHLORIDE) [Concomitant]
  7. OMALIZUMAB [Suspect]
     Active Substance: OMALIZUMAB
     Route: 058
     Dates: start: 20090630
  8. SYMBICORT [Concomitant]
     Active Substance: BUDESONIDE\FORMOTEROL FUMARATE DIHYDRATE

REACTIONS (20)
  - Asthenia [Unknown]
  - Tremor [Unknown]
  - Gait disturbance [Unknown]
  - Sciatic nerve injury [Recovering/Resolving]
  - Upper respiratory tract infection [Unknown]
  - Nasopharyngitis [Unknown]
  - Ecchymosis [Unknown]
  - Pneumonia [Unknown]
  - Cough [Recovered/Resolved]
  - Hepatic cirrhosis [Unknown]
  - Fall [Unknown]
  - Influenza like illness [Unknown]
  - Sinusitis [Unknown]
  - Bronchitis [Unknown]
  - Influenza [Unknown]
  - Thirst [Recovered/Resolved]
  - Productive cough [Unknown]
  - Hypotension [Unknown]
  - Fatigue [Unknown]
  - Asthma [Unknown]

NARRATIVE: CASE EVENT DATE: 20101107
